FAERS Safety Report 8910917 (Version 3)
Quarter: 2013Q1

REPORT INFORMATION
  Report Type: Report from Study
  Country: JP (occurrence: JP)
  Receive Date: 20121116
  Receipt Date: 20130315
  Transmission Date: 20140127
  Serious: Yes (Other)
  Sender: FDA-Public Use
  Company Number: JP-009507513-1211JPN005727

PATIENT
  Age: 57 Year
  Sex: Male
  Weight: 75 kg

DRUGS (12)
  1. PEGINTRON [Suspect]
     Indication: CHRONIC HEPATITIS C
     Dosage: 1.5 MICROGRAM PER KILOGRAM, QW,DAILY DOSE UNKNOWN
     Route: 058
     Dates: start: 20120912, end: 20130220
  2. REBETOL [Suspect]
     Indication: CHRONIC HEPATITIS C
     Dosage: 800 MG, QD
     Route: 048
     Dates: start: 20120912, end: 20121023
  3. REBETOL [Suspect]
     Dosage: 600 MG, QD
     Route: 048
     Dates: start: 20121024, end: 20121106
  4. REBETOL [Suspect]
     Dosage: 400 MG, QD
     Route: 048
     Dates: start: 20121107
  5. REBETOL [Suspect]
     Dosage: 600 MG, QD
     Route: 048
     Dates: start: 20130130, end: 20130226
  6. TELAVIC [Suspect]
     Indication: CHRONIC HEPATITIS C
     Dosage: 2250 MG, QD
     Route: 048
     Dates: start: 20120912, end: 20121031
  7. TELAVIC [Suspect]
     Dosage: 1500MG,QD
     Route: 048
     Dates: start: 20121101
  8. URSO [Concomitant]
     Indication: CHRONIC HEPATITIS C
     Dosage: 900 MG, QD
     Route: 048
     Dates: end: 20121020
  9. NORVASC [Concomitant]
     Indication: HYPERTENSION
     Dosage: 5 MG, QD
     Route: 048
  10. PL-GRANULES [Concomitant]
     Indication: NASOPHARYNGITIS
     Dosage: 3 G, QD
     Route: 048
     Dates: start: 20121107, end: 20121113
  11. PL-GRANULES [Concomitant]
     Dosage: 3 G, QD
     Route: 048
     Dates: start: 20121205, end: 20121211
  12. MUCODYNE [Concomitant]
     Indication: PRODUCTIVE COUGH
     Dosage: 1500 MG, QD
     Route: 048
     Dates: start: 20121114, end: 20121225

REACTIONS (2)
  - Anaemia [Recovering/Resolving]
  - Hypokalaemia [Recovered/Resolved]
